FAERS Safety Report 9912960 (Version 1)
Quarter: 2014Q1

REPORT INFORMATION
  Report Type: Spontaneous
  Country: DK (occurrence: DK)
  Receive Date: 20140220
  Receipt Date: 20140220
  Transmission Date: 20141002
  Serious: Yes (Hospitalization)
  Sender: FDA-Public Use
  Company Number: DK-JNJFOC-20140210085

PATIENT
  Age: 55 Year
  Sex: Female

DRUGS (7)
  1. DUROGESIC [Suspect]
     Indication: PAIN
     Route: 062
  2. DUROGESIC [Suspect]
     Indication: PAIN
     Route: 062
  3. FURIX [Concomitant]
     Route: 065
  4. PULMICORT [Concomitant]
     Route: 055
  5. KALEORID [Concomitant]
     Route: 065
  6. STILNOCT [Concomitant]
     Dosage: 1 TABLET IN EVENING
     Route: 065
  7. LETROZOL [Concomitant]
     Route: 065

REACTIONS (3)
  - Pain [Unknown]
  - Expired drug administered [Unknown]
  - Wrong technique in drug usage process [Unknown]
